FAERS Safety Report 7006085-0 (Version None)
Quarter: 2010Q3

REPORT INFORMATION
  Report Type: 
  Country: None (occurrence: None)
  Receive Date: 20100921
  Receipt Date: 20100913
  Transmission Date: 20110219
  Serious: Yes (Other)
  Sender: FDA-Public Use
  Company Number: BR-PFIZER INC-2010115456

PATIENT
  Age: 40 Year
  Sex: Male
  Weight: 90 kg

DRUGS (6)
  1. FRONTAL [Suspect]
     Indication: PANIC REACTION
     Dosage: 1 MG, DAILY
     Route: 048
     Dates: start: 20090801, end: 20100901
  2. FRONTAL [Interacting]
     Dosage: UNK
     Route: 048
     Dates: start: 20100901, end: 20100911
  3. ALCOHOL [Interacting]
     Dosage: UNK
  4. COCAINE [Interacting]
     Dosage: UNK
  5. CITALOPRAM [Concomitant]
     Indication: PANIC REACTION
     Dosage: 20 MG, UNK
     Dates: start: 20090801, end: 20100701
  6. TOPAMAX [Concomitant]
     Dosage: 3 MG, UNK
     Dates: start: 20090801, end: 20100601

REACTIONS (6)
  - ALCOHOL INTERACTION [None]
  - CARDIAC ARREST [None]
  - DRUG INTERACTION [None]
  - PANIC REACTION [None]
  - PHOBIA [None]
  - WEIGHT DECREASED [None]
